FAERS Safety Report 25464494 (Version 1)
Quarter: 2025Q2

REPORT INFORMATION
  Report Type: Spontaneous
  Country: CA (occurrence: CA)
  Receive Date: 20250621
  Receipt Date: 20250621
  Transmission Date: 20250716
  Serious: Yes (Disabling)
  Sender: TAKEDA
  Company Number: CA-LUNDBECK-DKLU4015926

PATIENT
  Age: 36 Year
  Sex: Male

DRUGS (2)
  1. TRINTELLIX [Suspect]
     Active Substance: VORTIOXETINE HYDROBROMIDE
     Indication: Depression
     Dosage: 10 MILLIGRAM, QD
  2. TRINTELLIX [Suspect]
     Active Substance: VORTIOXETINE HYDROBROMIDE
     Indication: Anxiety

REACTIONS (3)
  - Amnesia [Unknown]
  - Fatigue [Unknown]
  - Psychomotor retardation [Unknown]
